FAERS Safety Report 7298788-8 (Version None)
Quarter: 2011Q1

REPORT INFORMATION
  Report Type: 
  Country: None (occurrence: None)
  Receive Date: 20110217
  Receipt Date: 20110214
  Transmission Date: 20110831
  Serious: Yes (Hospitalization)
  Sender: FDA-Public Use
  Company Number: DE-PFIZER INC-2011032214

PATIENT
  Age: 44 Year
  Sex: Female
  Weight: 56 kg

DRUGS (10)
  1. LYRICA [Suspect]
     Indication: NEURALGIA
     Dosage: 50 MG, 1X/DAY
     Dates: start: 20110201, end: 20110206
  2. NOVALGIN [Concomitant]
     Dosage: 20 DF, 3X/DAY
     Dates: start: 20110207, end: 20110210
  3. TETRAZEPAM [Concomitant]
     Dosage: 50 MG, 1X/DAY
     Route: 048
     Dates: start: 20110128, end: 20110210
  4. ACETYLCYSTEINE [Concomitant]
     Indication: COUGH
     Dosage: 600 MG, 1X/DAY
     Dates: start: 20110130, end: 20110204
  5. DICLOFENAC RESINATE [Concomitant]
     Indication: MUSCULOSKELETAL PAIN
     Dosage: 75 MG, 2X/DAY
     Route: 048
     Dates: start: 20110128, end: 20110203
  6. AMITRIPTYLINE HCL [Concomitant]
     Dosage: 10 MG, 1X/DAY
     Route: 048
     Dates: start: 20110128, end: 20110210
  7. TRAMADOL HCL [Concomitant]
     Dosage: 20 DF, 3X/DAY
     Dates: start: 20110130, end: 20110210
  8. CLEXANE [Concomitant]
     Dosage: 0.2 ML, 1X/DAY
     Dates: start: 20110128, end: 20110210
  9. NOVALGIN [Concomitant]
     Dosage: 20 DF, 3X/DAY
     Dates: start: 20110128, end: 20110203
  10. PANTOPRAZOLE [Concomitant]
     Indication: PROPHYLAXIS
     Dosage: 40 MG, 1X/DAY
     Route: 048
     Dates: start: 20110128, end: 20110206

REACTIONS (4)
  - ABDOMINAL PAIN UPPER [None]
  - ALANINE AMINOTRANSFERASE INCREASED [None]
  - ASPARTATE AMINOTRANSFERASE INCREASED [None]
  - GAMMA-GLUTAMYLTRANSFERASE INCREASED [None]
